FAERS Safety Report 8245270-7 (Version None)
Quarter: 2012Q1

REPORT INFORMATION
  Report Type: 
  Country: None (occurrence: None)
  Receive Date: 20120329
  Receipt Date: 20120323
  Transmission Date: 20120608
  Serious: Yes (Life-Threatening, Hospitalization)
  Sender: FDA-Public Use
  Company Number: GB-ROCHE-1053454

PATIENT
  Sex: Female
  Weight: 72.5 kg

DRUGS (1)
  1. VEMURAFENIB [Suspect]
     Indication: MALIGNANT MELANOMA
     Dosage: 22/MAR/2012: LAST DOSE PRIOR TO SAE, TEMPORARILY INTERUPTED
     Route: 048
     Dates: start: 20111129, end: 20120322

REACTIONS (1)
  - TORSADE DE POINTES [None]
